FAERS Safety Report 24068501 (Version 2)
Quarter: 2024Q3

REPORT INFORMATION
  Report Type: Spontaneous
  Country: PT (occurrence: PT)
  Receive Date: 20240710
  Receipt Date: 20240710
  Transmission Date: 20241017
  Serious: No
  Sender: ROCHE
  Company Number: PT-ROCHE-3528672

PATIENT
  Sex: Male

DRUGS (1)
  1. FARICIMAB [Suspect]
     Active Substance: FARICIMAB
     Indication: Age-related macular degeneration
     Route: 050

REACTIONS (1)
  - Subretinal fluid [Unknown]
